FAERS Safety Report 9645257 (Version 1)
Quarter: 2013Q4

REPORT INFORMATION
  Report Type: Spontaneous
  Country: US (occurrence: None)
  Receive Date: 20131023
  Receipt Date: 20131023
  Transmission Date: 20140711
  Serious: Yes (Other)
  Sender: FDA-Public Use
  Company Number: None

PATIENT
  Age: 69 Year
  Sex: Female
  Weight: 77.11 kg

DRUGS (6)
  1. WELCHOL [Suspect]
     Indication: BLOOD CHOLESTEROL INCREASED
     Dosage: 1 TBLESPOON - POWDER  1 X DAY ADDED LIQUID TO POWDER
     Dates: start: 20130402, end: 20130915
  2. LISINOPRIL-HCTZ [Concomitant]
  3. ZETIA [Concomitant]
  4. CENTRUM SILVER [Concomitant]
  5. CALTRATE 600 + D [Concomitant]
  6. PRESERVISION LUTEIN [Concomitant]

REACTIONS (4)
  - Oropharyngeal pain [None]
  - Dyspepsia [None]
  - Muscle tightness [None]
  - Musculoskeletal stiffness [None]
